FAERS Safety Report 24906705 (Version 3)
Quarter: 2025Q1

REPORT INFORMATION
  Report Type: Spontaneous
  Country: US (occurrence: US)
  Receive Date: 20250130
  Receipt Date: 20250322
  Transmission Date: 20250409
  Serious: Yes (Other)
  Sender: SANOFI AVENTIS
  Company Number: US-SA-2025SA025081

PATIENT
  Age: 62 Year
  Sex: Female

DRUGS (2)
  1. DUPIXENT [Suspect]
     Active Substance: DUPILUMAB
     Indication: Eczema
     Route: 058
     Dates: start: 20241217, end: 20241217
  2. DUPIXENT [Suspect]
     Active Substance: DUPILUMAB
     Dosage: 300 MG, QOW
     Route: 058
     Dates: start: 20250101, end: 20250211

REACTIONS (10)
  - Multiple sclerosis relapse [Unknown]
  - Illness [Recovered/Resolved]
  - Diplopia [Recovered/Resolved]
  - Swelling [Unknown]
  - Pyrexia [Unknown]
  - Viral infection [Unknown]
  - Nasopharyngitis [Unknown]
  - Pruritus [Unknown]
  - Rebound eczema [Unknown]
  - Inappropriate schedule of product administration [Unknown]

NARRATIVE: CASE EVENT DATE: 20241201
